FAERS Safety Report 6402694-8 (Version None)
Quarter: 2009Q4

REPORT INFORMATION
  Report Type: 
  Country: None (occurrence: None)
  Receive Date: 20091009
  Receipt Date: 20091001
  Transmission Date: 20100525
  Serious: Yes (Hospitalization)
  Sender: FDA-Public Use
  Company Number: GXKR2009CH10900

PATIENT
  Age: 74 Year
  Sex: Female

DRUGS (4)
  1. ECODUREX           (AMILORIDE, HYDROCHLOROTHIAZIDE) [Suspect]
     Indication: ESSENTIAL HYPERTENSION
     Dosage: 50 MG/DAY, ORAL
     Route: 048
     Dates: end: 20081225
  2. PRAVASTATIN     (PRAVASTATIN) TABLET [Concomitant]
  3. ASPIRIN [Concomitant]
  4. INIBACE (CILAZAPRIL) TABLET [Concomitant]

REACTIONS (14)
  - CONFUSIONAL STATE [None]
  - CONTUSION [None]
  - DEHYDRATION [None]
  - DYSARTHRIA [None]
  - ELECTROLYTE IMBALANCE [None]
  - FALL [None]
  - FATIGUE [None]
  - GASTROENTERITIS [None]
  - HYPERTENSIVE CRISIS [None]
  - HYPOAESTHESIA [None]
  - HYPOKALAEMIA [None]
  - HYPONATRAEMIA [None]
  - HYPOPHOSPHATAEMIA [None]
  - MEDICATION ERROR [None]
